FAERS Safety Report 5504571-3 (Version None)
Quarter: 2007Q4

REPORT INFORMATION
  Report Type: 
  Country: None (occurrence: None)
  Receive Date: 20071031
  Receipt Date: 20071023
  Transmission Date: 20080405
  Serious: Yes (Death, Hospitalization)
  Sender: FDA-Public Use
  Company Number: 220005M07SWE

PATIENT
  Sex: Female

DRUGS (7)
  1. SAIZEN [Suspect]
     Indication: GROWTH HORMONE DEFICIENCY
     Dosage: 2.45 MG, 1 IN 1 DAYS
     Dates: start: 19990715, end: 20001115
  2. DESMOPRESSIN ACETATE [Concomitant]
  3. HYDROCORTISONE /00028601/ [Concomitant]
  4. ASPIRIN [Concomitant]
  5. LEVOTHYROXINE SODIUM [Concomitant]
  6. TRILEPTAL [Concomitant]
  7. OMEPRAZOLE [Concomitant]

REACTIONS (2)
  - ELECTROLYTE IMBALANCE [None]
  - STATUS EPILEPTICUS [None]
